FAERS Safety Report 22089474 (Version 1)
Quarter: 2023Q1

REPORT INFORMATION
  Report Type: Spontaneous
  Country: US (occurrence: None)
  Receive Date: 20230311
  Receipt Date: 20230311
  Transmission Date: 20230418
  Serious: Yes (Life-Threatening, Hospitalization, Disabling, Other)
  Sender: FDA-Public Use
  Company Number: None

PATIENT
  Age: 62 Year
  Sex: Female

DRUGS (13)
  1. GABAPENTIN [Suspect]
     Active Substance: GABAPENTIN
     Indication: Alcoholism
     Dosage: FREQUENCY : 4 TIMES A DAY;?
     Route: 048
     Dates: start: 20200101, end: 20220601
  2. OXAZEPAM [Suspect]
     Active Substance: OXAZEPAM
     Indication: Alcoholism
     Route: 048
  3. METHADONE [Suspect]
     Active Substance: METHADONE HYDROCHLORIDE
  4. TEMAZEPAM [Suspect]
     Active Substance: TEMAZEPAM
  5. LACTULOSE [Concomitant]
     Active Substance: LACTULOSE
  6. rifaxamin [Concomitant]
  7. PANTOPRAZOLE SODIUM [Concomitant]
     Active Substance: PANTOPRAZOLE SODIUM
  8. BUSPIRONE [Suspect]
     Active Substance: BUSPIRONE HYDROCHLORIDE
  9. Unisom sleep gels [Concomitant]
  10. MELATONIN [Concomitant]
  11. advil [Concomitant]
  12. BENADRYL ALLERGY [Concomitant]
     Active Substance: DIPHENHYDRAMINE HYDROCHLORIDE
  13. ALEVE [Concomitant]
     Active Substance: NAPROXEN SODIUM

REACTIONS (20)
  - Treatment noncompliance [None]
  - Dyspnoea [None]
  - Fatigue [None]
  - Cough [None]
  - Choking [None]
  - Confusional state [None]
  - Paranoia [None]
  - Coordination abnormal [None]
  - Agitation [None]
  - Seizure [None]
  - Withdrawal syndrome [None]
  - Refusal of treatment by patient [None]
  - Suicide attempt [None]
  - Headache [None]
  - Abdominal pain upper [None]
  - Hostility [None]
  - Suicidal ideation [None]
  - Loss of personal independence in daily activities [None]
  - Haematemesis [None]
  - Drug monitoring procedure not performed [None]

NARRATIVE: CASE EVENT DATE: 20230311
